FAERS Safety Report 4443628-5 (Version None)
Quarter: 2004Q3

REPORT INFORMATION
  Report Type: 
  Country: None (occurrence: None)
  Receive Date: 20040908
  Receipt Date: 19990218
  Transmission Date: 20050211
  Serious: Yes (Death)
  Sender: FDA-Public Use
  Company Number: 200392

PATIENT
  Age: 66 Year
  Sex: Female

DRUGS (7)
  1. CARVEDILOL [Suspect]
     Route: 048
     Dates: start: 19981202, end: 19990125
  2. CHLORDIAZEPOXIDE [Concomitant]
     Dates: start: 19981006, end: 19990125
  3. DIGOXIN [Concomitant]
     Dates: start: 19981006, end: 19990125
  4. FUROSEMIDE [Concomitant]
     Dates: start: 19981006, end: 19990125
  5. ENALAPRIL MALEATE [Concomitant]
  6. ZOPICLONE [Concomitant]
     Dates: start: 19981006, end: 19990125
  7. MAPROTILINE HYDROCHLORIDE [Concomitant]
     Dates: start: 19981006, end: 19990125

REACTIONS (1)
  - SUDDEN DEATH [None]
